FAERS Safety Report 9496124 (Version 3)
Quarter: 2013Q4

REPORT INFORMATION
  Report Type: Report from Study
  Country: CO (occurrence: CO)
  Receive Date: 20130904
  Receipt Date: 20131007
  Transmission Date: 20140711
  Serious: Yes (Life-Threatening, Hospitalization, Other)
  Sender: FDA-Public Use
  Company Number: CO-ROCHE-1269409

PATIENT
  Age: 53 Year
  Sex: Female
  Weight: 50 kg

DRUGS (4)
  1. LUCENTIS [Suspect]
     Indication: PRODUCT USED FOR UNKNOWN INDICATION
     Route: 050
     Dates: start: 20130409
  2. LUCENTIS [Suspect]
     Route: 050
     Dates: start: 20130511
  3. LOSARTAN [Concomitant]
  4. LEVOTHYROXINE [Concomitant]

REACTIONS (2)
  - Pulmonary oedema [Recovered/Resolved]
  - Renal disorder [Recovered/Resolved]
